FAERS Safety Report 10043688 (Version 1)
Quarter: 2014Q1

REPORT INFORMATION
  Report Type: Spontaneous
  Country: US (occurrence: US)
  Receive Date: 20140328
  Receipt Date: 20140328
  Transmission Date: 20141002
  Serious: Yes (Other)
  Sender: FDA-Public Use
  Company Number: US-ASTRAZENECA-2014SE19563

PATIENT
  Sex: Female

DRUGS (26)
  1. CRESTOR [Suspect]
     Route: 048
  2. MORPHINE IR/ER [Suspect]
     Dosage: MORPHINE IR 15 MG, EVERY 4-6 HOUR AS REQUIRED
     Route: 065
  3. MORPHINE IR/ER [Suspect]
     Dosage: MORPHINE ER 15 MG, TWO TIMES A DAY AS REQUIRED
     Route: 065
  4. PROZAC [Concomitant]
  5. ATIVAN [Concomitant]
  6. DEPAKOTE ER [Concomitant]
  7. RISPERDAL [Concomitant]
  8. SINGULAIR [Concomitant]
  9. ADVAIR [Concomitant]
     Dosage: 1 PUFF IN MORNING AND 1 PUFF IN EVENING
  10. CLARITIN [Concomitant]
     Dosage: 10 MG EACH MORNING WHEN POLLEN BAD
  11. ZYRTEC [Concomitant]
  12. ZANTAC [Concomitant]
     Dosage: 150 MG WITH CLARITIN AND ZYRTEC AS RQUIRED
  13. ALAVERT [Concomitant]
     Dosage: AS RQUIRED
  14. ALBUTEROL [Concomitant]
     Dosage: EVERY 4 HOURS, AS RQUIRED
  15. IBRATROPIUM BROMIDE [Concomitant]
     Dosage: 0.5 EVERY 4 HOURS, AS RQUIRED
  16. ALBUTEROL SULFATE [Concomitant]
     Dosage: 3.0
  17. FIORICET [Concomitant]
     Dosage: EVERY 4 HOURS, AS RQUIRED
  18. PROTONIX [Concomitant]
     Dosage: 1-2 TABLETS/DAY
  19. BISOPROLOL [Concomitant]
  20. BUMEX [Concomitant]
     Dosage: 1 TABLET AM AND 1 TABLET PM
  21. BYSTOLIC [Concomitant]
  22. PRAVASTATIN [Concomitant]
  23. LATANOPROST [Concomitant]
     Dosage: 1 DROP EACH EYE NIGTHLY
  24. ASPIRIN [Concomitant]
  25. SENNA-S [Concomitant]
     Dosage: 2-3 TABLETS/DAY
  26. FEOSOL [Concomitant]

REACTIONS (3)
  - Suicidal ideation [Unknown]
  - Depression [Unknown]
  - Muscle spasms [Unknown]
